FAERS Safety Report 20711796 (Version 1)
Quarter: 2022Q2

REPORT INFORMATION
  Report Type: Spontaneous
  Country: US (occurrence: US)
  Receive Date: 20220414
  Receipt Date: 20220414
  Transmission Date: 20220720
  Serious: Yes (Other)
  Sender: FDA-Public Use
  Company Number: US-PURDUE-USA-2022-0293132

PATIENT

DRUGS (4)
  1. DEXTROAMPHET SACCHARAT, AMPHET ASPARTATE, DEXTROAMPHET SULFATE AND AMP [Suspect]
     Active Substance: AMPHETAMINE ASPARTATE\AMPHETAMINE SULFATE\DEXTROAMPHETAMINE SACCHARATE\DEXTROAMPHETAMINE SULFATE
     Indication: Attention deficit hyperactivity disorder
     Dosage: 7 (6.5) FOR 5 MG/9 HOURS
     Route: 062
  2. DEXTROAMPHET SACCHARAT, AMPHET ASPARTATE, DEXTROAMPHET SULFATE AND AMP [Suspect]
     Active Substance: AMPHETAMINE ASPARTATE\AMPHETAMINE SULFATE\DEXTROAMPHETAMINE SACCHARATE\DEXTROAMPHETAMINE SULFATE
     Dosage: 35 (32.7) FOR 10 MG/9 HOURS
     Route: 062
  3. DEXTROAMPHET SACCHARAT, AMPHET ASPARTATE, DEXTROAMPHET SULFATE AND AMP [Suspect]
     Active Substance: AMPHETAMINE ASPARTATE\AMPHETAMINE SULFATE\DEXTROAMPHETAMINE SACCHARATE\DEXTROAMPHETAMINE SULFATE
     Dosage: 42 (39.3) FOR 15 MG/9 HOURS
     Route: 062
  4. DEXTROAMPHET SACCHARAT, AMPHET ASPARTATE, DEXTROAMPHET SULFATE AND AMP [Suspect]
     Active Substance: AMPHETAMINE ASPARTATE\AMPHETAMINE SULFATE\DEXTROAMPHETAMINE SACCHARATE\DEXTROAMPHETAMINE SULFATE
     Dosage: 23 (21.5) FOR 20 MG/9 HOURS
     Route: 062

REACTIONS (18)
  - Hyperkalaemia [Unknown]
  - Decreased appetite [Unknown]
  - Insomnia [Unknown]
  - Headache [Unknown]
  - Vomiting [Unknown]
  - Nasopharyngitis [Unknown]
  - Abdominal pain upper [Unknown]
  - Nausea [Unknown]
  - Affect lability [Unknown]
  - Tic [Unknown]
  - Irritability [Unknown]
  - Application site pain [Unknown]
  - Application site pruritus [Unknown]
  - Application site burn [Unknown]
  - Application site discomfort [Unknown]
  - Application site oedema [Unknown]
  - Application site swelling [Unknown]
  - Application site irritation [Unknown]
